FAERS Safety Report 18118739 (Version 1)
Quarter: 2020Q3

REPORT INFORMATION
  Report Type: Report from Study
  Country: US (occurrence: US)
  Receive Date: 20200806
  Receipt Date: 20200806
  Transmission Date: 20201103
  Serious: Yes (Other)
  Sender: FDA-Public Use
  Company Number: US-GILEAD-2019-0436203

PATIENT
  Age: 33 Year
  Sex: Female
  Weight: 64 kg

DRUGS (27)
  1. NEXIUM I.V. [Concomitant]
     Active Substance: ESOMEPRAZOLE SODIUM
  2. AZITHROMYCIN ANHYDROUS. [Concomitant]
     Active Substance: AZITHROMYCIN ANHYDROUS
  3. PRENATAL VITAMINS [MINERALS NOS;VITAMINS NOS] [Concomitant]
     Active Substance: MINERALS\VITAMINS
  4. BREO ELLIPTA [Concomitant]
     Active Substance: FLUTICASONE FUROATE\VILANTEROL TRIFENATATE
  5. NASONEX [Concomitant]
     Active Substance: MOMETASONE FUROATE
  6. SYMDEKO [Concomitant]
     Active Substance: IVACAFTOR\TEZACAFTOR
  7. ACTIGALL [Concomitant]
     Active Substance: URSODIOL
  8. TRIKAFTA [Concomitant]
     Active Substance: ELEXACAFTOR\IVACAFTOR\TEZACAFTOR
  9. LORATADINE. [Concomitant]
     Active Substance: LORATADINE
  10. ADVAIR HFA [Concomitant]
     Active Substance: FLUTICASONE PROPIONATE\SALMETEROL XINAFOATE
  11. VITAMIN E NOS [Concomitant]
     Active Substance: .ALPHA.-TOCOPHEROL
  12. CREON [Concomitant]
     Active Substance: PANCRELIPASE AMYLASE\PANCRELIPASE LIPASE\PANCRELIPASE PROTEASE
  13. FLONASE [Concomitant]
     Active Substance: FLUTICASONE PROPIONATE
  14. TYLENOL [Concomitant]
     Active Substance: ACETAMINOPHEN
  15. PULMOZYME [Concomitant]
     Active Substance: DORNASE ALFA
  16. CALCIUM CITRATE + D [Concomitant]
     Active Substance: CALCIUM CITRATE\CHOLECALCIFEROL
  17. SINUS RINSE [Concomitant]
     Active Substance: SODIUM BICARBONATE\SODIUM CHLORIDE
  18. ALBUTEROL [SALBUTAMOL] [Concomitant]
     Active Substance: ALBUTEROL
  19. SPIRIVA [Concomitant]
     Active Substance: TIOTROPIUM BROMIDE MONOHYDRATE
  20. GUAIFENESIN. [Concomitant]
     Active Substance: GUAIFENESIN
  21. LEVAQUIN [Concomitant]
     Active Substance: LEVOFLOXACIN
  22. AFRINE [Concomitant]
  23. AQUADEKS [Concomitant]
     Active Substance: MINERALS\VITAMINS
  24. AZTREONAM LYSINE [Suspect]
     Active Substance: AZTREONAM LYSINE
     Indication: CYSTIC FIBROSIS
     Dosage: 75 MG, TID
     Route: 055
     Dates: start: 20150519
  25. BETA CAROTENE. [Concomitant]
     Active Substance: BETA CAROTENE
  26. VITRON C [Concomitant]
     Active Substance: ASCORBIC ACID\IRON
  27. DIFLUCAN [Concomitant]
     Active Substance: FLUCONAZOLE

REACTIONS (3)
  - Twin pregnancy [Recovered/Resolved]
  - Vanishing twin syndrome [Recovered/Resolved]
  - Maternal exposure during pregnancy [Recovered/Resolved]

NARRATIVE: CASE EVENT DATE: 20191025
